FAERS Safety Report 9187880 (Version 2)
Quarter: 2013Q2

REPORT INFORMATION
  Report Type: Spontaneous
  Country: AU (occurrence: AU)
  Receive Date: 20130325
  Receipt Date: 20130429
  Transmission Date: 20140414
  Serious: Yes (Other)
  Sender: FDA-Public Use
  Company Number: AU-COVIDIEN/TYCO HEALTHCARE/MALLINCKRODT-T201301388

PATIENT
  Sex: Female

DRUGS (2)
  1. EXALGO EXTENDED RELEASE [Suspect]
     Indication: BACK PAIN
     Dosage: 32 MG, UNK
     Route: 048
     Dates: start: 2009
  2. EXALGO EXTENDED RELEASE [Suspect]
     Indication: SPINAL PAIN
     Dosage: 16 MG
     Route: 048
     Dates: start: 20130228

REACTIONS (4)
  - Intentional drug misuse [Unknown]
  - Inappropriate schedule of drug administration [Unknown]
  - Drug ineffective [Unknown]
  - Medication residue present [Unknown]
